FAERS Safety Report 13100791 (Version 5)
Quarter: 2018Q3

REPORT INFORMATION
  Report Type: Spontaneous
  Country: US (occurrence: US)
  Receive Date: 20170110
  Receipt Date: 20180904
  Transmission Date: 20181010
  Serious: Yes (Hospitalization, Other)
  Sender: FDA-Public Use
  Company Number: US-009507513-1701USA003708

PATIENT
  Sex: Female
  Weight: 78.01 kg

DRUGS (1)
  1. NUVARING [Suspect]
     Active Substance: ETHINYL ESTRADIOL\ETONOGESTREL
     Indication: CONTRACEPTION
     Dosage: 0.12?0.015 MG/24 HOUR,1 RING FOR 3 WEEKS THEN 1 WEEK OFF
     Route: 067
     Dates: start: 20141016, end: 20150118

REACTIONS (9)
  - Headache [Recovering/Resolving]
  - Anxiety [Unknown]
  - Menorrhagia [Unknown]
  - Hypoaesthesia [Unknown]
  - Muscle spasms [Unknown]
  - Pulmonary embolism [Not Recovered/Not Resolved]
  - Sinus tachycardia [Not Recovered/Not Resolved]
  - Lipoma [Unknown]
  - Blood disorder [Unknown]

NARRATIVE: CASE EVENT DATE: 2015
